FAERS Safety Report 14214782 (Version 2)
Quarter: 2018Q1

REPORT INFORMATION
  Report Type: Spontaneous
  Country: US (occurrence: US)
  Receive Date: 20171122
  Receipt Date: 20180205
  Transmission Date: 20180508
  Serious: No
  Sender: FDA-Public Use
  Company Number: US-PFIZER INC-2017503319

PATIENT
  Age: 81 Year
  Sex: Female
  Weight: 104 kg

DRUGS (1)
  1. XELJANZ XR [Suspect]
     Active Substance: TOFACITINIB CITRATE
     Indication: RHEUMATOID ARTHRITIS
     Dosage: 11 MG, ONCE A DAY (EVERY NIGHT)
     Route: 048

REACTIONS (3)
  - Dyspnoea [Unknown]
  - Upper respiratory tract infection [Recovering/Resolving]
  - Nasopharyngitis [Unknown]
